FAERS Safety Report 8869755 (Version 1)
Quarter: 2012Q4

REPORT INFORMATION
  Report Type: Spontaneous
  Country: US (occurrence: None)
  Receive Date: 20121024
  Receipt Date: 20121024
  Transmission Date: 20130627
  Serious: Yes (Hospitalization)
  Sender: FDA-Public Use
  Company Number: 2012AP003413

PATIENT
  Age: 58 Year
  Sex: Male

DRUGS (7)
  1. ALLOPURINOL [Suspect]
     Indication: OVERDOSE ACCIDENTAL
  2. FUROSEMIDE [Concomitant]
  3. CARVEDILOL [Concomitant]
  4. SIMVASTATIN [Concomitant]
  5. COLCHICINE [Concomitant]
  6. CLOPIDOGREL [Concomitant]
  7. ASPIRIN [Concomitant]

REACTIONS (8)
  - Renal failure acute [None]
  - Gastroenteritis [None]
  - Accidental overdose [None]
  - Medication error [None]
  - Chest pain [None]
  - Vomiting [None]
  - Haematochezia [None]
  - Renal cyst [None]
